FAERS Safety Report 7956276-7 (Version None)
Quarter: 2011Q4

REPORT INFORMATION
  Report Type: 
  Country: None (occurrence: None)
  Receive Date: 20111109
  Receipt Date: 20111027
  Transmission Date: 20120403
  Serious: Yes (Other)
  Sender: FDA-Public Use
  Company Number: 2011PROUSA00733

PATIENT
  Age: 88 Year
  Sex: Male
  Weight: 102 kg

DRUGS (8)
  1. COUMADIN [Concomitant]
  2. SPIRONOLACTONE [Concomitant]
  3. FLOMAX /00889901/ (MORNIFLUMATE) [Concomitant]
  4. LUPRON [Concomitant]
  5. PROVENGE [Suspect]
     Indication: PROSTATE CANCER METASTATIC
     Dosage: 250 ML, SINGLE, INTRAVENOUS
     Route: 042
     Dates: start: 20111014, end: 20111014
  6. ATENOLOL [Concomitant]
  7. FUROSEMIDE [Concomitant]
  8. CASODEX [Concomitant]

REACTIONS (5)
  - DYSPNOEA [None]
  - HAEMOGLOBIN DECREASED [None]
  - CARDIAC FAILURE CONGESTIVE [None]
  - DIZZINESS [None]
  - ASTHENIA [None]
